FAERS Safety Report 23753765 (Version 1)
Quarter: 2024Q2

REPORT INFORMATION
  Report Type: Spontaneous
  Country: US (occurrence: US)
  Receive Date: 20240417
  Receipt Date: 20240417
  Transmission Date: 20240715
  Serious: Yes (Other)
  Sender: FDA-Public Use
  Company Number: US-SUN PHARMACEUTICAL INDUSTRIES LTD-2024R1-441544

PATIENT
  Age: 58 Year
  Sex: Male

DRUGS (3)
  1. DISOPYRAMIDE [Suspect]
     Active Substance: DISOPYRAMIDE
     Indication: Diarrhoea
     Dosage: 100 MILLIGRAM, DAILY
     Route: 065
  2. DILTIAZEM [Suspect]
     Active Substance: DILTIAZEM
     Indication: Chronic kidney disease
     Dosage: 30 MILLIGRAM TWICE DAILY
     Route: 065
  3. METOPROLOL SUCCINATE [Suspect]
     Active Substance: METOPROLOL SUCCINATE
     Indication: Blood pressure measurement
     Dosage: 200 MILLIGRAM
     Route: 065

REACTIONS (3)
  - Drug ineffective [Unknown]
  - Bradycardia [Unknown]
  - Diarrhoea [Unknown]
